FAERS Safety Report 6468541-3 (Version None)
Quarter: 2009Q4

REPORT INFORMATION
  Report Type: 
  Country: None (occurrence: None)
  Receive Date: 20091203
  Receipt Date: 20091119
  Transmission Date: 20100525
  Serious: Yes (Other)
  Sender: FDA-Public Use
  Company Number: US-RB-026061-09

PATIENT
  Age: 38 Year
  Sex: Male

DRUGS (3)
  1. DELSYM [Suspect]
     Route: 048
     Dates: start: 20091119
  2. BENZONATATE [Concomitant]
  3. DOXYCYCLINE [Concomitant]

REACTIONS (3)
  - DIZZINESS [None]
  - HYPERVENTILATION [None]
  - PARAESTHESIA [None]
